FAERS Safety Report 20783942 (Version 1)
Quarter: 2022Q2

REPORT INFORMATION
  Report Type: Spontaneous
  Country: US (occurrence: US)
  Receive Date: 20220504
  Receipt Date: 20220504
  Transmission Date: 20220721
  Serious: Yes (Hospitalization, Other)
  Sender: FDA-Public Use
  Company Number: US-AMGEN-USASP2022070532

PATIENT

DRUGS (2)
  1. INFLIXIMAB [Suspect]
     Active Substance: INFLIXIMAB
     Indication: Colitis ulcerative
     Route: 065
  2. INFLIXIMAB [Suspect]
     Active Substance: INFLIXIMAB
     Indication: Proctitis

REACTIONS (12)
  - Bacteraemia [Unknown]
  - Urinary tract infection [Unknown]
  - Pneumonia [Unknown]
  - Embolism venous [Unknown]
  - Unevaluable event [Unknown]
  - Clostridium difficile infection [Unknown]
  - Opportunistic infection [Unknown]
  - Post procedural infection [Unknown]
  - Gastrointestinal infection [Unknown]
  - Bacterial infection [Unknown]
  - Infection [Unknown]
  - Treatment failure [Unknown]
